FAERS Safety Report 21499828 (Version 1)
Quarter: 2022Q4

REPORT INFORMATION
  Report Type: Spontaneous
  Country: US (occurrence: US)
  Receive Date: 20221024
  Receipt Date: 20221024
  Transmission Date: 20230112
  Serious: No
  Sender: FDA-Public Use
  Company Number: US-PFIZER INC-202201248657

PATIENT
  Age: 57 Year
  Sex: Male
  Weight: 77.11 kg

DRUGS (13)
  1. PAXLOVID [Suspect]
     Active Substance: NIRMATRELVIR\RITONAVIR
     Indication: Lyme disease
     Dosage: 3 DF (6 PACK; TAKES 3 TABLETS IN THE MORNING AND 3 TABLETS AT NIGHT 300MG; 100MG DOSE PACK)
     Dates: start: 20220701
  2. CEFTIN [Suspect]
     Active Substance: CEFUROXIME AXETIL
     Indication: Cat scratch disease
     Dosage: 2000 MG A DAY
  3. METHSCOPOLAMINE NITRATE [Concomitant]
     Active Substance: METHSCOPOLAMINE NITRATE
     Indication: Crohn^s disease
     Dosage: 5 MG, 2X/DAY
  4. QUESTRAN [Concomitant]
     Active Substance: CHOLESTYRAMINE
     Indication: Inborn error in primary bile acid synthesis
     Dosage: UNK
     Dates: start: 1983
  5. ATORVASTATIN [Concomitant]
     Active Substance: ATORVASTATIN
     Indication: Blood cholesterol increased
     Dosage: 10 MG, 1X/DAY
  6. OLMESARTAN [Concomitant]
     Active Substance: OLMESARTAN
     Indication: Blood pressure abnormal
     Dosage: 10 MG
  7. LEVOTHYROXINE [Concomitant]
     Active Substance: LEVOTHYROXINE
     Indication: Hypothyroidism
     Dosage: 87 UG
  8. LEVOTHYROXINE [Concomitant]
     Active Substance: LEVOTHYROXINE
     Dosage: 112 UG, 1X/DAY FOR THE LAST YEAR OR TWO
  9. NAPROSYN [Concomitant]
     Active Substance: NAPROXEN
     Indication: Pain
     Dosage: 500 MG, AS NEEDED
  10. AZITHROMYCIN [Concomitant]
     Active Substance: AZITHROMYCIN
     Dosage: 500 MG A DAY
     Dates: start: 2022
  11. AZITHROMYCIN [Concomitant]
     Active Substance: AZITHROMYCIN
     Dosage: 250 MG, 2X/DAY
  12. AMOXICILLIN [Concomitant]
     Active Substance: AMOXICILLIN
     Dosage: UNK
     Dates: start: 2022
  13. AMOXICILLIN [Concomitant]
     Active Substance: AMOXICILLIN
     Dosage: 875 MG, 3X/DAY
     Dates: start: 2022

REACTIONS (4)
  - Dysgeusia [Unknown]
  - Off label use [Unknown]
  - Drug effective for unapproved indication [Unknown]
  - Inappropriate schedule of product administration [Unknown]

NARRATIVE: CASE EVENT DATE: 20220101
